FAERS Safety Report 14660574 (Version 1)
Quarter: 2018Q1

REPORT INFORMATION
  Report Type: Spontaneous
  Country: US (occurrence: US)
  Receive Date: 20180320
  Receipt Date: 20180320
  Transmission Date: 20180509
  Serious: Yes (Hospitalization)
  Sender: FDA-Public Use
  Company Number: US-ASTRAZENECA-2018SE33606

PATIENT
  Age: 69 Year
  Sex: Female
  Weight: 49.9 kg

DRUGS (5)
  1. DALIRESP [Suspect]
     Active Substance: ROFLUMILAST
     Indication: CHRONIC OBSTRUCTIVE PULMONARY DISEASE
     Dosage: 500 MICROGRAM
     Route: 055
     Dates: start: 201801
  2. SYMBICORT [Suspect]
     Active Substance: BUDESONIDE\FORMOTEROL FUMARATE DIHYDRATE
     Indication: EMPHYSEMA
     Dosage: TWO TIMES A DAY
     Route: 055
  3. DALIRESP [Suspect]
     Active Substance: ROFLUMILAST
     Indication: EMPHYSEMA
     Dosage: 500 MICROGRAM
     Route: 055
     Dates: start: 201801
  4. SYMBICORT [Suspect]
     Active Substance: BUDESONIDE\FORMOTEROL FUMARATE DIHYDRATE
     Indication: CHRONIC OBSTRUCTIVE PULMONARY DISEASE
     Dosage: TWO TIMES A DAY
     Route: 055
  5. IMODIUM [Concomitant]
     Active Substance: LOPERAMIDE HYDROCHLORIDE
     Indication: ABNORMAL FAECES

REACTIONS (10)
  - Psoriasis [Unknown]
  - Body height decreased [Unknown]
  - Abdominal pain upper [Unknown]
  - Malaise [Unknown]
  - Product use in unapproved indication [Unknown]
  - Diarrhoea [Unknown]
  - Off label use [Unknown]
  - Pneumonia [Unknown]
  - Hypoacusis [Unknown]
  - Frequent bowel movements [Unknown]

NARRATIVE: CASE EVENT DATE: 2015
